FAERS Safety Report 5753437-2 (Version None)
Quarter: 2008Q2

REPORT INFORMATION
  Report Type: 
  Country: None (occurrence: None)
  Receive Date: 20080530
  Receipt Date: 20080519
  Transmission Date: 20081010
  Serious: Yes (Other)
  Sender: FDA-Public Use
  Company Number: US-NOVOPROD-275581

PATIENT
  Age: 45 Year
  Sex: Female
  Weight: 105.67 kg

DRUGS (6)
  1. NOVOLIN N [Suspect]
     Indication: INSULIN-REQUIRING TYPE 2 DIABETES MELLITUS
     Dosage: 35 IU, QD
     Dates: start: 20040501
  2. INSULIN LISPRO [Concomitant]
     Dosage: 5 IU, QD
     Dates: start: 20040501
  3. PIOGLITAZONE [Concomitant]
     Dosage: 30 MG, QD
     Dates: start: 20030101
  4. LIDOCAINE [Concomitant]
     Indication: NEURALGIA
     Dosage: 5 %
  5. ENALAPRIL MALEATE [Concomitant]
     Dosage: 2.5 MG, QD
     Dates: end: 20040501
  6. METFORMINE [Concomitant]
     Dosage: UNK, UNK
     Dates: start: 20010101

REACTIONS (2)
  - ABORTION SPONTANEOUS [None]
  - DRUG EXPOSURE DURING PREGNANCY [None]
